FAERS Safety Report 16296243 (Version 5)
Quarter: 2020Q2

REPORT INFORMATION
  Report Type: Report from Study
  Country: ES (occurrence: ES)
  Receive Date: 20190510
  Receipt Date: 20200624
  Transmission Date: 20200713
  Serious: Yes (Hospitalization, Other)
  Sender: FDA-Public Use
  Company Number: ES-ROCHE-2304011

PATIENT
  Age: 75 Year
  Sex: Female
  Weight: 74 kg

DRUGS (62)
  1. ATORVASTATIN [Concomitant]
     Active Substance: ATORVASTATIN
     Route: 065
     Dates: start: 20190815, end: 20190903
  2. ATORVASTATIN [Concomitant]
     Active Substance: ATORVASTATIN
     Route: 065
     Dates: start: 20190615, end: 20190702
  3. EPROSARTAN [Concomitant]
     Active Substance: EPROSARTAN
     Route: 065
     Dates: start: 20190503, end: 20190521
  4. PARACETAMOL [Concomitant]
     Active Substance: ACETAMINOPHEN
     Indication: BACK PAIN
     Route: 065
     Dates: start: 20190403, end: 20190403
  5. HIBOR [Concomitant]
     Indication: DEVICE RELATED THROMBOSIS
     Route: 065
     Dates: start: 20190410, end: 20191010
  6. ATORVASTATIN [Concomitant]
     Active Substance: ATORVASTATIN
     Indication: HYPERCHOLESTEROLAEMIA
     Route: 065
     Dates: start: 1999, end: 20190410
  7. ATORVASTATIN [Concomitant]
     Active Substance: ATORVASTATIN
     Route: 065
     Dates: start: 20190418, end: 20190430
  8. EPROSARTAN [Concomitant]
     Active Substance: EPROSARTAN
     Route: 065
     Dates: start: 20190705, end: 20190723
  9. OMEPRAZOLE. [Concomitant]
     Active Substance: OMEPRAZOLE
     Route: 065
     Dates: start: 20190418, end: 20190430
  10. METHYLPREDNISOLONE. [Concomitant]
     Active Substance: METHYLPREDNISOLONE
     Route: 042
     Dates: start: 20190411, end: 20190411
  11. OBINUTUZUMAB. [Suspect]
     Active Substance: OBINUTUZUMAB
     Indication: B-CELL LYMPHOMA
     Dosage: AT A FIXED DOSE 7 DAYS BEFORE THE FIRST DOSE OF RO7082859?DATE OF MOST RECENT DOSE OF OBINUTUZUMAB P
     Route: 042
     Dates: start: 20190404
  12. LEVOTIROXINA [LEVOTHYROXINE] [Concomitant]
     Route: 065
     Dates: start: 1993
  13. EPROSARTAN [Concomitant]
     Active Substance: EPROSARTAN
     Route: 065
     Dates: start: 20190406, end: 20190410
  14. EPROSARTAN [Concomitant]
     Active Substance: EPROSARTAN
     Route: 065
     Dates: start: 20190726, end: 20190812
  15. EPROSARTAN [Concomitant]
     Active Substance: EPROSARTAN
     Route: 065
     Dates: start: 20190526, end: 20190611
  16. PARACETAMOL [Concomitant]
     Active Substance: ACETAMINOPHEN
     Route: 042
     Dates: start: 20190502, end: 20190502
  17. SALINE [SODIUM CHLORIDE] [Concomitant]
     Active Substance: SODIUM CHLORIDE
     Indication: PROPHYLAXIS
     Route: 065
     Dates: start: 20190410, end: 20190416
  18. OMEPRAZOLE. [Concomitant]
     Active Substance: OMEPRAZOLE
     Route: 065
     Dates: start: 20190505, end: 20190521
  19. POLARAMINE [Concomitant]
     Active Substance: DEXCHLORPHENIRAMINE MALEATE
     Route: 042
     Dates: start: 20190405, end: 20190405
  20. DEXAMETHASONE. [Concomitant]
     Active Substance: DEXAMETHASONE
     Route: 042
     Dates: start: 20190405, end: 20190405
  21. ATORVASTATIN [Concomitant]
     Active Substance: ATORVASTATIN
     Route: 065
     Dates: start: 1999, end: 20190410
  22. PARACETAMOL [Concomitant]
     Active Substance: ACETAMINOPHEN
     Indication: CARPAL TUNNEL SYNDROME
     Route: 065
     Dates: start: 2016
  23. SALINE [SODIUM CHLORIDE] [Concomitant]
     Active Substance: SODIUM CHLORIDE
     Route: 065
     Dates: start: 20190501, end: 20190505
  24. OMEPRAZOLE. [Concomitant]
     Active Substance: OMEPRAZOLE
     Route: 065
     Dates: start: 20190906
  25. POLARAMINE [Concomitant]
     Active Substance: DEXCHLORPHENIRAMINE MALEATE
     Route: 042
     Dates: start: 20190411, end: 20190411
  26. ATORVASTATIN [Concomitant]
     Active Substance: ATORVASTATIN
     Route: 065
     Dates: start: 20190906
  27. ATORVASTATIN [Concomitant]
     Active Substance: ATORVASTATIN
     Route: 065
     Dates: start: 20190526, end: 20190611
  28. EPROSARTAN [Concomitant]
     Active Substance: EPROSARTAN
     Route: 065
     Dates: start: 20190415, end: 20190430
  29. EPROSARTAN [Concomitant]
     Active Substance: EPROSARTAN
     Route: 065
     Dates: start: 20190906
  30. PREDNISONE. [Concomitant]
     Active Substance: PREDNISONE
     Indication: LYMPHOMA
     Route: 065
     Dates: end: 20190315
  31. PARACETAMOL [Concomitant]
     Active Substance: ACETAMINOPHEN
     Route: 042
     Dates: start: 20190411, end: 20190411
  32. PARACETAMOL [Concomitant]
     Active Substance: ACETAMINOPHEN
     Route: 042
     Dates: start: 20190404, end: 20190404
  33. PARACETAMOL [Concomitant]
     Active Substance: ACETAMINOPHEN
     Route: 065
     Dates: start: 20190405, end: 20190405
  34. OMEPRAZOLE. [Concomitant]
     Active Substance: OMEPRAZOLE
     Route: 065
     Dates: start: 20190815, end: 20190903
  35. POLARAMINE [Concomitant]
     Active Substance: DEXCHLORPHENIRAMINE MALEATE
     Route: 042
     Dates: start: 20190502, end: 20190502
  36. METHYLPREDNISOLONE. [Concomitant]
     Active Substance: METHYLPREDNISOLONE
     Route: 042
     Dates: start: 20190502, end: 20190502
  37. RO7082859 (CD20/C3 T-CELL BISPECIFIC MAB) [Suspect]
     Active Substance: GLOFITAMAB
     Indication: B-CELL LYMPHOMA
     Dosage: BEGINNING CYCLE 1, DAY 1, FOR UP TO 17 CYCLES?DATE OF MOST RECENT DOSE OF RO7082859 (CD20/C3 T-CELL
     Route: 042
     Dates: start: 20190411
  38. ATORVASTATIN [Concomitant]
     Active Substance: ATORVASTATIN
     Route: 065
     Dates: start: 20190726, end: 20190812
  39. EPROSARTAN [Concomitant]
     Active Substance: EPROSARTAN
     Route: 065
     Dates: start: 20190503, end: 20190521
  40. EPROSARTAN [Concomitant]
     Active Substance: EPROSARTAN
     Route: 065
     Dates: start: 20190615, end: 20190702
  41. LORAZEPAM. [Concomitant]
     Active Substance: LORAZEPAM
     Indication: INSOMNIA
     Route: 065
     Dates: start: 2018
  42. PARACETAMOL [Concomitant]
     Active Substance: ACETAMINOPHEN
     Route: 042
     Dates: start: 20190405, end: 20190405
  43. SALINE [SODIUM CHLORIDE] [Concomitant]
     Active Substance: SODIUM CHLORIDE
     Route: 065
     Dates: start: 20190703, end: 20190705
  44. OMEPRAZOLE. [Concomitant]
     Active Substance: OMEPRAZOLE
     Indication: HIATUS HERNIA
     Route: 065
     Dates: start: 2018, end: 20190410
  45. OMEPRAZOLE. [Concomitant]
     Active Substance: OMEPRAZOLE
     Route: 065
     Dates: start: 20190726, end: 20190812
  46. ALLOPURINOL. [Concomitant]
     Active Substance: ALLOPURINOL
     Indication: HYPERURICAEMIA
     Route: 065
     Dates: start: 20190403, end: 20191218
  47. POLARAMINE [Concomitant]
     Active Substance: DEXCHLORPHENIRAMINE MALEATE
     Route: 042
     Dates: start: 20190404, end: 20190404
  48. ATORVASTATIN [Concomitant]
     Active Substance: ATORVASTATIN
     Route: 065
     Dates: start: 20190505, end: 20190521
  49. EPROSARTAN [Concomitant]
     Active Substance: EPROSARTAN
     Indication: HYPERTENSION
     Route: 065
     Dates: start: 2004, end: 20190403
  50. EPROSARTAN [Concomitant]
     Active Substance: EPROSARTAN
     Route: 065
     Dates: start: 20190815, end: 20190903
  51. EPROSARTAN [Concomitant]
     Active Substance: EPROSARTAN
     Route: 065
     Dates: start: 20190415, end: 20190430
  52. SALINE [SODIUM CHLORIDE] [Concomitant]
     Active Substance: SODIUM CHLORIDE
     Route: 065
     Dates: start: 20190612, end: 20190614
  53. FUROSEMIDE. [Concomitant]
     Active Substance: FUROSEMIDE
     Indication: PROPHYLAXIS
     Route: 065
     Dates: start: 20190413, end: 20190413
  54. OMEPRAZOLE. [Concomitant]
     Active Substance: OMEPRAZOLE
     Route: 065
     Dates: start: 20190526, end: 20190611
  55. DEXAMETHASONE. [Concomitant]
     Active Substance: DEXAMETHASONE
     Route: 042
     Dates: start: 20190404, end: 20190404
  56. SEGURIL [Concomitant]
     Active Substance: FUROSEMIDE
     Indication: WEIGHT INCREASED
     Route: 065
     Dates: start: 20190503, end: 20190503
  57. ATEZOLIZUMAB. [Suspect]
     Active Substance: ATEZOLIZUMAB
     Indication: B-CELL LYMPHOMA
     Dosage: DATE OF MOST RECENT DOSE PRIOR TO SECOND OCCURRENCE AT 10.25
     Route: 041
     Dates: start: 20190502
  58. ATORVASTATIN [Concomitant]
     Active Substance: ATORVASTATIN
     Route: 065
     Dates: start: 20190705, end: 20190723
  59. GLUCOSALINE [Concomitant]
     Indication: PROPHYLAXIS
     Route: 065
     Dates: start: 20190403, end: 20190405
  60. SALINE [SODIUM CHLORIDE] [Concomitant]
     Active Substance: SODIUM CHLORIDE
     Route: 065
     Dates: start: 20190522, end: 20190525
  61. OMEPRAZOLE. [Concomitant]
     Active Substance: OMEPRAZOLE
     Route: 065
     Dates: start: 20190615, end: 20190702
  62. POLARAMINE [Concomitant]
     Active Substance: DEXCHLORPHENIRAMINE MALEATE
     Indication: RASH
     Route: 065
     Dates: start: 20190413, end: 20190413

REACTIONS (2)
  - Cytokine release syndrome [Recovered/Resolved]
  - Cytokine release syndrome [Recovered/Resolved]

NARRATIVE: CASE EVENT DATE: 20190411
